FAERS Safety Report 5495540-0 (Version None)
Quarter: 2007Q4

REPORT INFORMATION
  Report Type: 
  Country: None (occurrence: None)
  Receive Date: 20071015
  Receipt Date: 20070509
  Transmission Date: 20080405
  Serious: Yes (Hospitalization)
  Sender: FDA-Public Use
  Company Number: S07-USA-01981-01

PATIENT
  Age: 84 Year
  Sex: Female

DRUGS (3)
  1. LEXAPRO [Suspect]
     Indication: DEPRESSION
     Dosage: 10 MG QD PO
     Route: 048
     Dates: start: 20070423, end: 20070401
  2. AVALIDE [Suspect]
     Indication: HYPERTENSION
     Dates: end: 20070401
  3. ATENOLOL [Concomitant]

REACTIONS (1)
  - BLOOD SODIUM DECREASED [None]
